FAERS Safety Report 5464696-8 (Version None)
Quarter: 2007Q3

REPORT INFORMATION
  Report Type: 
  Country: None (occurrence: None)
  Receive Date: 20070921
  Receipt Date: 20070917
  Transmission Date: 20080115
  Serious: Yes (Life-Threatening, Hospitalization)
  Sender: FDA-Public Use
  Company Number: DE-PFIZER INC-2006084874

PATIENT
  Sex: Male
  Weight: 70 kg

DRUGS (10)
  1. SU-011,248 [Suspect]
     Indication: METASTATIC RENAL CELL CARCINOMA
     Route: 048
     Dates: start: 20060609, end: 20060704
  2. ZOMETA [Concomitant]
     Route: 042
  3. DICLO-DIVIDO LONG [Concomitant]
     Route: 048
     Dates: start: 20060401
  4. PARACETAMOL [Concomitant]
     Route: 048
  5. PANTOPRAZOL [Concomitant]
     Route: 048
  6. MUTAFLOR [Concomitant]
     Route: 048
  7. LACTULOSE [Concomitant]
     Route: 048
  8. ARANESP [Concomitant]
     Route: 058
  9. ESOMEPRAZOLE MAGNESIUM [Concomitant]
     Route: 048
     Dates: start: 20070401, end: 20060704
  10. ALL OTHER THERAPEUTIC PRODUCTS [Concomitant]
     Route: 048
     Dates: start: 20060520, end: 20060704

REACTIONS (5)
  - DIARRHOEA [None]
  - ENTEROCOLITIS INFECTIOUS [None]
  - NECROTISING FASCIITIS [None]
  - RENAL FAILURE [None]
  - SEPSIS [None]
